FAERS Safety Report 19666384 (Version 1)
Quarter: 2021Q3

REPORT INFORMATION
  Report Type: Spontaneous
  Country: US (occurrence: US)
  Receive Date: 20210806
  Receipt Date: 20210806
  Transmission Date: 20211014
  Serious: No
  Sender: FDA-Public Use
  Company Number: None

PATIENT
  Age: 90 Year
  Sex: Female
  Weight: 63.9 kg

DRUGS (10)
  1. CALCIUM +D [Concomitant]
     Active Substance: CALCIUM\VITAMIN D
  2. GABAPENTIN. [Concomitant]
     Active Substance: GABAPENTIN
  3. ESOMEPRAZOLE. [Concomitant]
     Active Substance: ESOMEPRAZOLE MAGNESIUM
  4. CHOLECALCIFEROL [Concomitant]
     Active Substance: CHOLECALCIFEROL
  5. DONEPEZIL. [Concomitant]
     Active Substance: DONEPEZIL
  6. TAMOXIFEN [Concomitant]
     Active Substance: TAMOXIFEN
  7. VITAMIN C [Concomitant]
     Active Substance: ASCORBIC ACID
  8. XGEVA [Concomitant]
     Active Substance: DENOSUMAB
  9. CAPECITABINE. [Suspect]
     Active Substance: CAPECITABINE
     Indication: BREAST CANCER
     Dosage: ?          OTHER FREQUENCY:BID 14/21 DAYS;?
     Route: 048
     Dates: start: 20190813, end: 20210806
  10. CELECOXIB. [Concomitant]
     Active Substance: CELECOXIB

REACTIONS (1)
  - Disease progression [None]

NARRATIVE: CASE EVENT DATE: 20210806
